FAERS Safety Report 8555967-7 (Version None)
Quarter: 2012Q3

REPORT INFORMATION
  Report Type: 
  Country: None (occurrence: None)
  Receive Date: 20120801
  Receipt Date: 20120723
  Transmission Date: 20120928
  Serious: No
  Sender: FDA-Public Use
  Company Number: US-009507513-1207USA009741

PATIENT

DRUGS (16)
  1. PROVIGIL [Suspect]
  2. ZETIA [Suspect]
     Route: 048
  3. ZOCOR [Suspect]
     Route: 048
  4. ARTHROTEC [Suspect]
     Route: 048
  5. LIVALO [Suspect]
  6. AMBIEN CR [Suspect]
  7. LIPITOR [Suspect]
     Route: 048
  8. SULFAMETHOXAZOLE [Suspect]
  9. CEFZIL [Suspect]
  10. PCE [Suspect]
  11. AMOXICILLIN [Suspect]
     Dosage: 0.5, QD
  12. PRAVACHOL [Suspect]
  13. OXACILLIN SODIUM [Suspect]
  14. BIAXIN [Suspect]
  15. ULTRAM [Suspect]
  16. LORTAB [Suspect]

REACTIONS (1)
  - DRUG HYPERSENSITIVITY [None]
